FAERS Safety Report 9713663 (Version 1)
Quarter: 2013Q4

REPORT INFORMATION
  Report Type: Spontaneous
  Country: DK (occurrence: DK)
  Receive Date: 20131126
  Receipt Date: 20131126
  Transmission Date: 20140711
  Serious: Yes (Hospitalization)
  Sender: FDA-Public Use
  Company Number: DK-ELI_LILLY_AND_COMPANY-DK201311007789

PATIENT
  Age: 69 Year
  Sex: Male
  Weight: 97 kg

DRUGS (3)
  1. PRASUGREL HYDROCHLORIDE [Suspect]
     Indication: STENT PLACEMENT
     Dosage: 60 MG, SINGLE
     Route: 048
     Dates: start: 20111109, end: 20111109
  2. PRASUGREL HYDROCHLORIDE [Suspect]
     Dosage: 10 MG, QD
     Route: 048
     Dates: start: 20111110
  3. ACETYLSALICYLIC ACID [Concomitant]

REACTIONS (1)
  - Coronary artery restenosis [Recovered/Resolved]
